FAERS Safety Report 12715545 (Version 2)
Quarter: 2016Q4

REPORT INFORMATION
  Report Type: Spontaneous
  Country: CH (occurrence: CH)
  Receive Date: 20160906
  Receipt Date: 20161124
  Transmission Date: 20170207
  Serious: Yes (Death, Hospitalization, Other)
  Sender: FDA-Public Use
  Company Number: CH-ORION CORPORATION ORION PHARMA-16_00001866

PATIENT
  Age: 56 Year
  Sex: Male

DRUGS (14)
  1. LOPERAMID-MEPHA [Concomitant]
     Dosage: 1-1-1-1
     Route: 065
  2. CITALOPRAM [Concomitant]
     Active Substance: CITALOPRAM HYDROBROMIDE
     Dosage: 1.5-0-0-0
     Route: 065
  3. ECOMUCYL [Concomitant]
     Dosage: 1-0-0-0
     Route: 065
  4. TAZOBAC [Suspect]
     Active Substance: PIPERACILLIN SODIUM\TAZOBACTAM SODIUM
     Route: 065
     Dates: start: 20160725, end: 20160729
  5. SIMVASIN SPIRIG [Concomitant]
     Dosage: 0-0-1-0
     Route: 065
  6. SEROQUEL [Concomitant]
     Active Substance: QUETIAPINE FUMARATE
     Dosage: 0-0-0-1
     Route: 065
  7. NOVAMINSULFON [Suspect]
     Active Substance: METAMIZOLE
     Route: 065
     Dates: start: 20160729, end: 20160730
  8. ASPIRIN CARDIO [Concomitant]
     Active Substance: ASPIRIN
     Dosage: 1-0-0-0
     Route: 065
  9. DAFALGAN [Concomitant]
     Active Substance: ACETAMINOPHEN
     Route: 065
  10. PANTOZOL [Concomitant]
     Active Substance: PANTOPRAZOLE SODIUM
     Dosage: 1-0-0-0
     Route: 065
  11. MOTILIUM [Concomitant]
     Active Substance: DOMPERIDONE
     Route: 065
  12. METHOTREXATE. [Suspect]
     Active Substance: METHOTREXATE
     Indication: PSORIASIS
     Route: 048
     Dates: start: 201605, end: 20160725
  13. TARGOCID [Suspect]
     Active Substance: TEICOPLANIN
     Route: 065
     Dates: start: 20160729, end: 20160807
  14. NOVALGIN [Concomitant]
     Active Substance: METAMIZOLE SODIUM
     Route: 065

REACTIONS (23)
  - Toxicity to various agents [Fatal]
  - Diarrhoea haemorrhagic [Unknown]
  - Pain [Unknown]
  - Overdose [Unknown]
  - Product use issue [Unknown]
  - Leukopenia [Not Recovered/Not Resolved]
  - Liver disorder [Fatal]
  - Transaminases increased [Unknown]
  - Hypotension [Unknown]
  - Toxic encephalopathy [Unknown]
  - C-reactive protein increased [Unknown]
  - Acute kidney injury [Fatal]
  - Abdominal pain [Unknown]
  - Anaemia [Not Recovered/Not Resolved]
  - Gastrointestinal haemorrhage [Unknown]
  - Somnolence [Unknown]
  - Sepsis [Fatal]
  - General physical health deterioration [Unknown]
  - Metabolic encephalopathy [Unknown]
  - Mucosal inflammation [Fatal]
  - Thrombocytopenia [Not Recovered/Not Resolved]
  - Confusional state [Unknown]
  - Neutropenic colitis [Unknown]

NARRATIVE: CASE EVENT DATE: 201606
